FAERS Safety Report 6570277-5 (Version None)
Quarter: 2010Q1

REPORT INFORMATION
  Report Type: 
  Country: None (occurrence: None)
  Receive Date: 20100202
  Receipt Date: 20100202
  Transmission Date: 20100710
  Serious: No
  Sender: FDA-Public Use
  Company Number: None

PATIENT
  Sex: Female
  Weight: 61.4 kg

DRUGS (3)
  1. AVELOX [Suspect]
     Indication: CHRONIC SINUSITIS
     Dosage: 400MG DAILY PO
     Route: 048
     Dates: start: 20100118
  2. AVELOX [Suspect]
     Indication: CHRONIC SINUSITIS
     Dosage: 400MG DAILY PO
     Route: 048
     Dates: start: 20100119
  3. AVELOX [Suspect]
     Indication: CHRONIC SINUSITIS
     Dosage: 400MG DAILY PO
     Route: 048
     Dates: start: 20100120

REACTIONS (4)
  - ARTHRALGIA [None]
  - BODY TEMPERATURE INCREASED [None]
  - DIZZINESS [None]
  - OROPHARYNGEAL PAIN [None]
